FAERS Safety Report 5018810-9 (Version None)
Quarter: 2006Q2

REPORT INFORMATION
  Report Type: 
  Country: None (occurrence: None)
  Receive Date: 20060526
  Receipt Date: 20060523
  Transmission Date: 20061013
  Serious: Yes (Life-Threatening)
  Sender: FDA-Public Use
  Company Number: 200611998GDS

PATIENT
  Age: 52 Year
  Sex: Male
  Weight: 118 kg

DRUGS (22)
  1. AVELOX [Suspect]
     Indication: PNEUMONIA
     Dosage: 400 MG, QD, ORAL
     Route: 048
     Dates: start: 20060508, end: 20060509
  2. GLYBURIDE [Concomitant]
  3. METFORMIN [Concomitant]
  4. ACCUPRIL [Concomitant]
  5. AVAPRO [Concomitant]
  6. LASIX [Concomitant]
  7. ASPIRIN [Concomitant]
  8. XANAX [Concomitant]
  9. NEXIUM [Concomitant]
  10. ALDACTONE [Concomitant]
  11. FERREUX SULF 300 [Concomitant]
  12. VENTOLIN [Concomitant]
  13. SEREVENT [Concomitant]
  14. FLOVENT [Concomitant]
  15. SPIRIVA [Concomitant]
  16. NICODERM [Concomitant]
  17. PAXIL [Concomitant]
  18. TRAZODONE HCL [Concomitant]
  19. INSULIN HUM. R [Concomitant]
  20. ACETAMINOPHEN [Concomitant]
  21. BIAXIN [Concomitant]
  22. PREDNISONE [Concomitant]

REACTIONS (7)
  - CHRONIC OBSTRUCTIVE PULMONARY DISEASE [None]
  - DIABETES MELLITUS [None]
  - HYPERTENSION [None]
  - HYPOGLYCAEMIA [None]
  - PERONEAL MUSCULAR ATROPHY [None]
  - POLYNEUROPATHY [None]
  - PYREXIA [None]
